FAERS Safety Report 7794373-X (Version None)
Quarter: 2011Q4

REPORT INFORMATION
  Report Type: 
  Country: None (occurrence: None)
  Receive Date: 20111004
  Receipt Date: 20110921
  Transmission Date: 20120403
  Serious: Yes (Hospitalization, Other)
  Sender: FDA-Public Use
  Company Number: US-ELI_LILLY_AND_COMPANY-US201003000315

PATIENT
  Sex: Female

DRUGS (5)
  1. FORTEO [Suspect]
     Dosage: 20 UG, DAILY (1/D)
     Route: 065
  2. FORTEO [Suspect]
     Indication: OSTEOPOROSIS
     Dosage: 20 UG, DAILY (1/D)
     Route: 065
     Dates: start: 20091117
  3. FORTEO [Suspect]
     Dosage: 20 UG, DAILY (1/D)
  4. FORTEO [Suspect]
     Dosage: 20 UG, QD
  5. FORTEO [Suspect]
     Dosage: 20 UG, DAILY (1/D)

REACTIONS (10)
  - ARTHRALGIA [None]
  - MUSCLE SPASMS [None]
  - DRUG DOSE OMISSION [None]
  - PAIN IN EXTREMITY [None]
  - INJECTION SITE PAIN [None]
  - PAIN [None]
  - BONE PAIN [None]
  - INJECTION SITE DISCOLOURATION [None]
  - WRONG TECHNIQUE IN DRUG USAGE PROCESS [None]
  - RENAL FAILURE [None]
